FAERS Safety Report 12619052 (Version 3)
Quarter: 2019Q1

REPORT INFORMATION
  Report Type: Report from Study
  Country: US (occurrence: US)
  Receive Date: 20160803
  Receipt Date: 20190225
  Transmission Date: 20190417
  Serious: Yes (Hospitalization)
  Sender: FDA-Public Use
  Company Number: PHHO2016US011032

PATIENT
  Age: 75 Year
  Sex: Male

DRUGS (3)
  1. ODOMZO [Suspect]
     Active Substance: SONIDEGIB
     Dosage: 200 MG, QD EVERY 28 DAYS
     Route: 048
  2. ODOMZO [Suspect]
     Active Substance: SONIDEGIB
     Indication: MYELODYSPLASTIC SYNDROME
     Dosage: 200 MG, QD EVERY 28 DAYS (TOTAL DOSE ADMINISTERED 2600 MG)
     Route: 048
     Dates: start: 20160314, end: 20160619
  3. AZACITIDINE. [Suspect]
     Active Substance: AZACITIDINE
     Indication: MYELODYSPLASTIC SYNDROME
     Dosage: 75 MG/M2, QD (DAY 1 TO 7 IN 28 DAY CYCLE)
     Route: 058
     Dates: start: 20160314

REACTIONS (1)
  - Device related infection [Recovered/Resolved]

NARRATIVE: CASE EVENT DATE: 20160619
